FAERS Safety Report 17469468 (Version 1)
Quarter: 2020Q1

REPORT INFORMATION
  Report Type: Report from Study
  Country: US (occurrence: US)
  Receive Date: 20200227
  Receipt Date: 20200227
  Transmission Date: 20200409
  Serious: Yes (Hospitalization)
  Sender: FDA-Public Use
  Company Number: US-TAKEDA-2020TUS011195

PATIENT
  Age: 54 Year
  Sex: Female
  Weight: 78.91 kg

DRUGS (1)
  1. VEDOLIZUMAB [Suspect]
     Active Substance: VEDOLIZUMAB
     Indication: CROHN^S DISEASE
     Dosage: UNK
     Route: 042
     Dates: start: 20190730, end: 201911

REACTIONS (6)
  - Hot flush [Unknown]
  - Sinusitis [Not Recovered/Not Resolved]
  - Ear discomfort [Unknown]
  - Hepatic enzyme increased [Unknown]
  - Blood pressure systolic increased [Recovered/Resolved]
  - Dizziness [Recovering/Resolving]

NARRATIVE: CASE EVENT DATE: 201911
